FAERS Safety Report 5509094-3 (Version None)
Quarter: 2007Q4

REPORT INFORMATION
  Report Type: 
  Country: None (occurrence: None)
  Receive Date: 20071107
  Receipt Date: 20071030
  Transmission Date: 20080405
  Serious: Yes (Hospitalization)
  Sender: FDA-Public Use
  Company Number: US-ASTRAZENECA-2007UW25177

PATIENT
  Age: 76 Year
  Sex: Female
  Weight: 59 kg

DRUGS (4)
  1. ENTOCORT EC [Suspect]
     Indication: COLITIS
     Route: 048
     Dates: start: 20050101
  2. PNEUMONIA VACCINATION [Suspect]
     Indication: PNEUMONIA
  3. COUMADIN [Concomitant]
     Indication: THROMBOSIS
     Dosage: 10 MG AND 12.5 MG ALTERNATING DAYS
     Dates: start: 20050101
  4. PEPTO-BISMOL [Concomitant]
     Indication: COLITIS
     Dosage: 8 TABLETS DAILY
     Route: 048

REACTIONS (5)
  - CHEST PAIN [None]
  - DYSPNOEA [None]
  - INJECTION SITE OEDEMA [None]
  - INTERNATIONAL NORMALISED RATIO INCREASED [None]
  - MOVEMENT DISORDER [None]
